FAERS Safety Report 8011785-X (Version None)
Quarter: 2011Q4

REPORT INFORMATION
  Report Type: 
  Country: None (occurrence: None)
  Receive Date: 20111228
  Receipt Date: 20111219
  Transmission Date: 20120403
  Serious: Yes (Death)
  Sender: FDA-Public Use
  Company Number: US-PFIZER INC-2011309660

PATIENT
  Age: 51 Year
  Sex: Female

DRUGS (4)
  1. CARBAMAZEPINE [Suspect]
     Route: 048
  2. CLONAZEPAM [Suspect]
     Route: 048
  3. DOXEPIN HCL [Suspect]
     Route: 048
  4. ZOLPIDEM [Suspect]
     Route: 048

REACTIONS (3)
  - COMPLETED SUICIDE [None]
  - CARDIAC ARREST [None]
  - RESPIRATORY ARREST [None]
